FAERS Safety Report 24793615 (Version 1)
Quarter: 2024Q4

REPORT INFORMATION
  Report Type: Spontaneous
  Country: US (occurrence: None)
  Receive Date: 20241230
  Receipt Date: 20241230
  Transmission Date: 20250115
  Serious: No
  Sender: Public
  Company Number: None

PATIENT
  Age: 34 Year
  Sex: Female
  Weight: 87.75 kg

DRUGS (1)
  1. BENZOIN TINCTURE [Suspect]
     Active Substance: BENZOIN RESIN
     Indication: Surgery

REACTIONS (2)
  - Incision site rash [None]
  - Skin weeping [None]

NARRATIVE: CASE EVENT DATE: 20170224
